FAERS Safety Report 6202900-9 (Version None)
Quarter: 2009Q2

REPORT INFORMATION
  Report Type: 
  Country: None (occurrence: None)
  Receive Date: 20090526
  Receipt Date: 20090512
  Transmission Date: 20091009
  Serious: Yes (Hospitalization)
  Sender: FDA-Public Use
  Company Number: GB-GENENTECH-282944

PATIENT
  Sex: Female

DRUGS (3)
  1. BEVACIZUMAB [Suspect]
     Indication: OVARIAN EPITHELIAL CANCER
     Dosage: 590 MG, UNK
     Route: 042
     Dates: start: 20081003
  2. PACLITAXEL [Suspect]
     Indication: OVARIAN EPITHELIAL CANCER
     Dosage: 315 MG, UNK
     Route: 042
     Dates: start: 20081006
  3. CARBOPLATIN [Suspect]
     Indication: OVARIAN EPITHELIAL CANCER
     Dosage: 755 MG, UNK
     Route: 042
     Dates: start: 20081003

REACTIONS (1)
  - ABDOMINAL DISTENSION [None]
